FAERS Safety Report 9466069 (Version 3)
Quarter: 2017Q3

REPORT INFORMATION
  Report Type: Spontaneous
  Country: US (occurrence: US)
  Receive Date: 20130820
  Receipt Date: 20170821
  Transmission Date: 20171128
  Serious: Yes (Congenital Anomaly, Other)
  Sender: FDA-Public Use
  Company Number: US-ELI_LILLY_AND_COMPANY-US201308004449

PATIENT

DRUGS (2)
  1. PROZAC [Suspect]
     Active Substance: FLUOXETINE HYDROCHLORIDE
     Indication: PRODUCT USED FOR UNKNOWN INDICATION
     Dosage: 1 DF, UNKNOWN
     Route: 064
  2. PRENATAL VITAMINS                  /07499601/ [Concomitant]
     Active Substance: VITAMINS

REACTIONS (6)
  - Congenital aortic valve incompetence [Unknown]
  - Visual impairment [Unknown]
  - Foetal heart rate deceleration abnormality [Unknown]
  - Foetal hypokinesia [Unknown]
  - Congenital aortic valve stenosis [Unknown]
  - Foetal exposure during pregnancy [Unknown]
